FAERS Safety Report 10525934 (Version 1)
Quarter: 2014Q4

REPORT INFORMATION
  Report Type: Report from Study
  Country: US (occurrence: US)
  Receive Date: 20141017
  Receipt Date: 20141017
  Transmission Date: 20150528
  Serious: Yes (Hospitalization)
  Sender: FDA-Public Use
  Company Number: PHEH2014US020703

PATIENT
  Sex: Male

DRUGS (3)
  1. TOBI PODHALER [Suspect]
     Active Substance: TOBRAMYCIN
     Indication: LUNG DISORDER
  2. TOBI PODHALER [Suspect]
     Active Substance: TOBRAMYCIN
     Indication: CYSTIC FIBROSIS
     Dosage: 112 MG, BID
     Route: 055
     Dates: end: 201403
  3. TOBI PODHALER [Suspect]
     Active Substance: TOBRAMYCIN
     Indication: GASTROINTESTINAL DISORDER

REACTIONS (2)
  - Staphylococcal infection [Unknown]
  - Infective pulmonary exacerbation of cystic fibrosis [Unknown]
